FAERS Safety Report 10275865 (Version 9)
Quarter: 2015Q2

REPORT INFORMATION
  Report Type: Spontaneous
  Country: US (occurrence: US)
  Receive Date: 20140703
  Receipt Date: 20150610
  Transmission Date: 20150821
  Serious: Yes (Hospitalization, Other)
  Sender: FDA-Public Use
  Company Number: US-PFIZER INC-2014175973

PATIENT
  Age: 68 Year
  Sex: Male
  Weight: 92 kg

DRUGS (12)
  1. PANTOPRAZOLE [Concomitant]
     Active Substance: PANTOPRAZOLE SODIUM
     Dosage: UNK
  2. SUCRAFATE [Concomitant]
     Dosage: UNK
     Dates: start: 20140224
  3. TEMAZEPAM. [Concomitant]
     Active Substance: TEMAZEPAM
     Dosage: UNK
     Dates: start: 20140915
  4. SUTENT [Suspect]
     Active Substance: SUNITINIB MALATE
     Dosage: 25 MG, CYCLIC (DAILY, 4 WEEKS ON/2 WEEKS OFF)
     Route: 048
     Dates: start: 20140422, end: 20150107
  5. AMIODARONE [Concomitant]
     Active Substance: AMIODARONE
     Dosage: UNK
     Dates: start: 20140315
  6. ZOFRAN [Concomitant]
     Active Substance: ONDANSETRON HYDROCHLORIDE
     Dosage: UNK, AS NEEDED
     Dates: start: 20120515
  7. EPOGEN [Concomitant]
     Active Substance: ERYTHROPOIETIN
     Dosage: UNK
     Dates: start: 20100115
  8. SUTENT [Suspect]
     Active Substance: SUNITINIB MALATE
     Indication: RENAL CANCER METASTATIC
     Dosage: 25 MG, CYCLIC (DAILY, 4 WEEKS ON AND 2 WEEKS OFF)
     Route: 048
     Dates: start: 20120429, end: 20130101
  9. CARAFATE [Concomitant]
     Active Substance: SUCRALFATE
     Dosage: UNK
     Dates: start: 20140210, end: 20140315
  10. NEXIUM [Concomitant]
     Active Substance: ESOMEPRAZOLE MAGNESIUM
     Dosage: UNK
     Dates: start: 20140224, end: 20141230
  11. HYDROCODONE [Concomitant]
     Active Substance: HYDROCODONE
     Dosage: UNK, AS NEEDED
     Dates: start: 20140210
  12. METOPROLOL [Concomitant]
     Active Substance: METOPROLOL
     Dosage: UNK
     Dates: start: 200901, end: 20141029

REACTIONS (18)
  - Fatigue [Recovered/Resolved]
  - Yellow skin [Recovered/Resolved]
  - Arthralgia [Recovered/Resolved]
  - Anaemia [Not Recovered/Not Resolved]
  - Haemoglobin decreased [Recovering/Resolving]
  - Dysgeusia [Unknown]
  - Nausea [Unknown]
  - Ulcer haemorrhage [Recovered/Resolved]
  - Haematochezia [Not Recovered/Not Resolved]
  - Gastric antral vascular ectasia [Not Recovered/Not Resolved]
  - Alopecia [Unknown]
  - Diarrhoea [Recovered/Resolved]
  - Dry skin [Not Recovered/Not Resolved]
  - Pain [Recovered/Resolved]
  - Disease progression [Unknown]
  - Gastrointestinal haemorrhage [Not Recovered/Not Resolved]
  - Hypotension [Unknown]
  - Renal cancer metastatic [Unknown]

NARRATIVE: CASE EVENT DATE: 2014
